FAERS Safety Report 13414244 (Version 1)
Quarter: 2017Q2

REPORT INFORMATION
  Report Type: Spontaneous
  Country: SK (occurrence: SK)
  Receive Date: 20170406
  Receipt Date: 20170406
  Transmission Date: 20170830
  Serious: Yes (Hospitalization)
  Sender: FDA-Public Use
  Company Number: SK-BAYER-2017-060465

PATIENT
  Age: 49 Year
  Sex: Female

DRUGS (1)
  1. MIRENA [Suspect]
     Active Substance: LEVONORGESTREL
     Dosage: 20 MCG/24HR, CONT
     Route: 015

REACTIONS (7)
  - Abdominal pain [None]
  - Colitis ischaemic [None]
  - Chest pain [None]
  - Intestinal haemorrhage [None]
  - Gastritis [None]
  - Gastric haemorrhage [None]
  - Diarrhoea [None]
